FAERS Safety Report 7678847-8 (Version None)
Quarter: 2011Q3

REPORT INFORMATION
  Report Type: 
  Country: None (occurrence: None)
  Receive Date: 20110812
  Receipt Date: 20110805
  Transmission Date: 20111222
  Serious: Yes (Hospitalization, Other)
  Sender: FDA-Public Use
  Company Number: PHHY2011JP69090

PATIENT
  Age: 55 Year
  Sex: Male

DRUGS (2)
  1. DICLOFENAC SODIUM [Suspect]
     Indication: HEADACHE
     Dosage: UNK UKN, UNK
  2. DICLOFENAC SODIUM [Suspect]
     Indication: MUSCULOSKELETAL STIFFNESS

REACTIONS (3)
  - IRON DEFICIENCY ANAEMIA [None]
  - SMALL INTESTINE ULCER [None]
  - ILEAL STENOSIS [None]
